FAERS Safety Report 19077399 (Version 1)
Quarter: 2021Q1

REPORT INFORMATION
  Report Type: Spontaneous
  Country: US (occurrence: US)
  Receive Date: 20210331
  Receipt Date: 20210331
  Transmission Date: 20210420
  Serious: Yes (Other)
  Sender: FDA-Public Use
  Company Number: US-CELGENEUS-USA-20210307344

PATIENT
  Age: 51 Year
  Sex: Female
  Weight: 78.54 kg

DRUGS (1)
  1. POMALYST [Suspect]
     Active Substance: POMALIDOMIDE
     Indication: PLASMA CELL MYELOMA
     Dosage: 2 MILLIGRAM
     Route: 048
     Dates: start: 202103

REACTIONS (5)
  - Chronic kidney disease [Unknown]
  - Asthenia [Unknown]
  - Diarrhoea [Unknown]
  - Plasma cell myeloma recurrent [Unknown]
  - Fatigue [Unknown]

NARRATIVE: CASE EVENT DATE: 202103
